FAERS Safety Report 9268950 (Version 2)
Quarter: 2013Q2

REPORT INFORMATION
  Report Type: Spontaneous
  Country: DE (occurrence: DE)
  Receive Date: 20130503
  Receipt Date: 20130606
  Transmission Date: 20140414
  Serious: Yes (Other)
  Sender: FDA-Public Use
  Company Number: DE-ROCHE-1220744

PATIENT
  Age: 56 Year
  Sex: Female
  Weight: 160 kg

DRUGS (3)
  1. PEGASYS [Suspect]
     Indication: HEPATITIS C
     Route: 058
     Dates: start: 20130327, end: 20130426
  2. COPEGUS [Suspect]
     Indication: HEPATITIS C
     Route: 048
     Dates: start: 20130327, end: 20130430
  3. CANDESARTAN [Concomitant]
     Indication: HYPERTENSION

REACTIONS (4)
  - Blood count abnormal [Unknown]
  - White blood cell count decreased [Unknown]
  - Granulocytopenia [Recovering/Resolving]
  - Neutropenia [Recovering/Resolving]
